FAERS Safety Report 19068578 (Version 1)
Quarter: 2021Q1

REPORT INFORMATION
  Report Type: Spontaneous
  Country: US (occurrence: US)
  Receive Date: 20210329
  Receipt Date: 20210329
  Transmission Date: 20210420
  Serious: Yes (Other)
  Sender: FDA-Public Use
  Company Number: US-MYLANLABS-2021M1018118

PATIENT
  Age: 33 Year
  Sex: Male

DRUGS (1)
  1. CARBIDOPA/LEVODOPA [Suspect]
     Active Substance: CARBIDOPA\LEVODOPA
     Indication: PARKINSONISM
     Dosage: UP?TITRATED TO 1 TABLET THREE TIMES EVERY DAY
     Route: 065

REACTIONS (2)
  - Condition aggravated [Recovering/Resolving]
  - Parkinsonian gait [Recovering/Resolving]
